FAERS Safety Report 11422734 (Version 2)
Quarter: 2016Q3

REPORT INFORMATION
  Report Type: Spontaneous
  Country: JP (occurrence: JP)
  Receive Date: 20150827
  Receipt Date: 20160817
  Transmission Date: 20161109
  Serious: Yes (Other)
  Sender: FDA-Public Use
  Company Number: JP-VIIVHC-A201311869AA

PATIENT
  Sex: Male
  Weight: 85 kg

DRUGS (5)
  1. LEXIVA [Suspect]
     Active Substance: FOSAMPRENAVIR CALCIUM
     Indication: HIV INFECTION
     Route: 048
     Dates: start: 20120604, end: 20121205
  2. BENZALIN [Suspect]
     Active Substance: NITRAZEPAM
     Indication: INSOMNIA
     Route: 048
     Dates: start: 20120604
  3. VIRACEPT [Concomitant]
     Active Substance: NELFINAVIR MESYLATE
     Indication: HIV INFECTION
     Route: 048
  4. EPZICOM [Suspect]
     Active Substance: ABACAVIR SULFATE\LAMIVUDINE
     Indication: HIV INFECTION
     Route: 048
  5. COMBIVIR [Concomitant]
     Active Substance: LAMIVUDINE\ZIDOVUDINE
     Indication: HIV INFECTION
     Route: 048

REACTIONS (3)
  - Blood triglycerides increased [Unknown]
  - Rash [Recovered/Resolved]
  - Pancreatitis acute [Unknown]

NARRATIVE: CASE EVENT DATE: 2012
